FAERS Safety Report 6109760-5 (Version None)
Quarter: 2009Q1

REPORT INFORMATION
  Report Type: 
  Country: None (occurrence: None)
  Receive Date: 20090310
  Receipt Date: 20080414
  Transmission Date: 20090719
  Serious: No
  Sender: FDA-Public Use
  Company Number: A0722483A

PATIENT
  Age: 53 Year
  Sex: Female

DRUGS (3)
  1. NICORETTE (MINT) [Suspect]
  2. NICORETTE (MINT) [Suspect]
  3. NICORETTE [Suspect]

REACTIONS (1)
  - INTENTIONAL DRUG MISUSE [None]
